FAERS Safety Report 6706288-6 (Version None)
Quarter: 2010Q2

REPORT INFORMATION
  Report Type: 
  Country: None (occurrence: None)
  Receive Date: 20100503
  Receipt Date: 20100421
  Transmission Date: 20101027
  Serious: Yes (Other)
  Sender: FDA-Public Use
  Company Number: US-PFIZER INC-2010051303

PATIENT
  Sex: Female

DRUGS (1)
  1. CELEBREX [Suspect]
     Indication: ARTHRITIS
     Dosage: UNK

REACTIONS (6)
  - ARTHRALGIA [None]
  - CARDIOVASCULAR DISORDER [None]
  - EYE DISORDER [None]
  - INTRAOCULAR PRESSURE TEST ABNORMAL [None]
  - OCULAR VASCULAR DISORDER [None]
  - OEDEMA [None]
